FAERS Safety Report 5467240-4 (Version None)
Quarter: 2007Q3

REPORT INFORMATION
  Report Type: 
  Country: None (occurrence: None)
  Receive Date: 20070920
  Receipt Date: 20070907
  Transmission Date: 20080115
  Serious: Yes (Hospitalization)
  Sender: FDA-Public Use
  Company Number: 8026826

PATIENT
  Age: 6 Year
  Sex: Female

DRUGS (3)
  1. KEPPRA [Suspect]
     Indication: EPILEPSY
     Dosage: 500 MG /D PO
     Route: 048
     Dates: start: 20070710
  2. EPILIM [Concomitant]
  3. LAMICTAL [Concomitant]

REACTIONS (2)
  - GRANULOCYTOPENIA [None]
  - THROMBOCYTOPENIA [None]
